FAERS Safety Report 5947460-2 (Version None)
Quarter: 2008Q4

REPORT INFORMATION
  Report Type: 
  Country: None (occurrence: None)
  Receive Date: 20081110
  Receipt Date: 20081029
  Transmission Date: 20090506
  Serious: Yes (Life-Threatening, Other)
  Sender: FDA-Public Use
  Company Number: JP-PFIZER INC-2008068215

PATIENT
  Sex: Male

DRUGS (18)
  1. CAMPTOSAR [Suspect]
     Indication: RECTAL CANCER
     Dosage: DAILY DOSE:150MG/M2
     Route: 042
     Dates: start: 20080526, end: 20080709
  2. LEUCOVORIN CALCIUM [Suspect]
     Indication: RECTAL CANCER
     Dosage: DAILY DOSE:100MG/M2
     Route: 042
     Dates: start: 20080526, end: 20080709
  3. FLUOROURACIL [Suspect]
     Indication: RECTAL CANCER
     Dosage: DAILY DOSE:400MG/M2-FREQ:BOLUS
     Route: 042
     Dates: start: 20080526, end: 20080709
  4. FLUOROURACIL [Suspect]
     Dosage: FREQ:CONTINUOUS INFUSION (D1-2)
     Route: 042
     Dates: start: 20080526, end: 20080709
  5. BEVACIZUMAB [Suspect]
     Indication: RECTAL CANCER
     Dosage: DAILY DOSE:300MG
     Route: 042
     Dates: start: 20080526, end: 20080709
  6. KYTRIL [Concomitant]
     Indication: PREMEDICATION
     Route: 042
     Dates: start: 20080526, end: 20080709
  7. DEXAMETHASONE [Concomitant]
     Indication: PREMEDICATION
     Route: 048
     Dates: start: 20080526, end: 20080709
  8. OXYCONTIN [Concomitant]
     Route: 048
  9. OXYCODONE HCL [Concomitant]
     Route: 048
  10. VOLTAREN [Concomitant]
     Route: 048
  11. SELBEX [Concomitant]
     Route: 048
  12. FERROMIA [Concomitant]
     Route: 048
  13. GABAPENTIN [Concomitant]
     Route: 048
  14. DEPAKENE [Concomitant]
     Route: 048
  15. MAGNESIUM OXIDE [Concomitant]
     Route: 048
  16. CEFAZOLIN SODIUM [Concomitant]
     Route: 042
     Dates: start: 20080711
  17. PAZUCROSS [Concomitant]
     Route: 042
     Dates: start: 20080713
  18. MEROPEN [Concomitant]
     Route: 042
     Dates: start: 20080717, end: 20080807

REACTIONS (4)
  - HAEMOGLOBIN DECREASED [None]
  - LEUKOPENIA [None]
  - NECROTISING FASCIITIS [None]
  - SEPSIS [None]
